FAERS Safety Report 12804163 (Version 3)
Quarter: 2016Q4

REPORT INFORMATION
  Report Type: Spontaneous
  Country: US (occurrence: US)
  Receive Date: 20161003
  Receipt Date: 20161031
  Transmission Date: 20170207
  Serious: Yes (Hospitalization)
  Sender: FDA-Public Use
  Company Number: US-BELCHER PHARMACEUTICALS, LLC-2016VTS00103

PATIENT
  Age: 7 Year
  Sex: Male
  Weight: 20.41 kg

DRUGS (2)
  1. NEXIUM [Concomitant]
     Active Substance: ESOMEPRAZOLE MAGNESIUM
  2. HYOSCYAMINE SULFATE SL [Suspect]
     Active Substance: HYOSCYAMINE SULFATE
     Indication: ABDOMINAL PAIN UPPER
     Dosage: 1 UNK, 1X/DAY
     Route: 060
     Dates: start: 2016, end: 20160712

REACTIONS (14)
  - Dysuria [Not Recovered/Not Resolved]
  - Balance disorder [Recovered/Resolved]
  - Heart rate irregular [Recovered/Resolved]
  - Headache [Not Recovered/Not Resolved]
  - Tongue disorder [Not Recovered/Not Resolved]
  - Hallucination [Recovered/Resolved]
  - Disorientation [Recovered/Resolved]
  - Overdose [Unknown]
  - Tachycardia [Recovered/Resolved]
  - Mydriasis [Recovering/Resolving]
  - Photophobia [Not Recovered/Not Resolved]
  - Communication disorder [Recovered/Resolved]
  - Dizziness [Recovering/Resolving]
  - Dysarthria [Recovered/Resolved]

NARRATIVE: CASE EVENT DATE: 20160712
